FAERS Safety Report 18043608 (Version 2)
Quarter: 2020Q3

REPORT INFORMATION
  Report Type: Report from Study
  Country: PL (occurrence: PL)
  Receive Date: 20200720
  Receipt Date: 20200728
  Transmission Date: 20201103
  Serious: Yes (Hospitalization, Other)
  Sender: FDA-Public Use
  Company Number: PL-ROCHE-2618703

PATIENT
  Age: 69 Year
  Sex: Male
  Weight: 62 kg

DRUGS (45)
  1. SOLU?MEDROL [Concomitant]
     Active Substance: METHYLPREDNISOLONE SODIUM SUCCINATE
     Dates: start: 20200407
  2. SOLU?MEDROL [Concomitant]
     Active Substance: METHYLPREDNISOLONE SODIUM SUCCINATE
     Dates: start: 20200317
  3. CLEMASTINUM [Concomitant]
     Active Substance: CLEMASTINE FUMARATE
     Dates: start: 20200428
  4. CLEMASTINUM [Concomitant]
     Active Substance: CLEMASTINE FUMARATE
     Dates: start: 20200324
  5. CLEMASTINUM [Concomitant]
     Active Substance: CLEMASTINE FUMARATE
     Dates: start: 20200407
  6. CLEMASTINUM [Concomitant]
     Active Substance: CLEMASTINE FUMARATE
     Dates: start: 20200519
  7. CLEMASTINUM [Concomitant]
     Active Substance: CLEMASTINE FUMARATE
     Dates: start: 20200317
  8. SODIUM CHLORIDE 0.9% [Concomitant]
     Active Substance: SODIUM CHLORIDE
     Dates: start: 20200317
  9. MILURIT [Concomitant]
     Active Substance: ALLOPURINOL
     Indication: PROPHYLAXIS
     Dates: start: 20200517
  10. MILURIT [Concomitant]
     Active Substance: ALLOPURINOL
     Dates: start: 20200616
  11. TOCILIZUMAB. [Suspect]
     Active Substance: TOCILIZUMAB
     Indication: B-CELL LYMPHOMA RECURRENT
     Dosage: ON 25/MAR/2020 AT 4:50 TO 5:50 PM PATIENT RECEIVED FIRST AND LAST STUDY DOSE OF TOCILIZUMAB ADMIN PR
     Route: 042
     Dates: start: 20200325
  12. PARACETAMOLUM [Concomitant]
     Active Substance: ACETAMINOPHEN
     Dates: start: 20200324
  13. PARACETAMOLUM [Concomitant]
     Active Substance: ACETAMINOPHEN
     Dates: start: 20200317
  14. METHYLPREDNISOLONE. [Concomitant]
     Active Substance: METHYLPREDNISOLONE
     Dates: start: 20200519
  15. PARACETAMOL [Concomitant]
     Active Substance: ACETAMINOPHEN
     Dates: start: 20200317
  16. SODIUM CHLORIDE 0.9% [Concomitant]
     Active Substance: SODIUM CHLORIDE
     Dates: start: 20200428
  17. METHYLPREDNISOLONE. [Concomitant]
     Active Substance: METHYLPREDNISOLONE
     Dates: start: 20200519
  18. OBINUTUZUMAB. [Suspect]
     Active Substance: OBINUTUZUMAB
     Indication: B-CELL LYMPHOMA RECURRENT
     Dosage: ON 17/MAR/2020 AT 4:42 PM PATIENT RECEIVED LAST STUDY DOSE OF OBINUTUZUMAB ADMIN PRIOR AE WAS 1000 M
     Route: 042
     Dates: start: 20200317
  19. PARACETAMOLUM [Concomitant]
     Active Substance: ACETAMINOPHEN
     Dates: start: 20200407
  20. CLEMASTIN [Concomitant]
     Active Substance: CLEMASTINE
     Dates: start: 20200317
  21. MILURIT [Concomitant]
     Active Substance: ALLOPURINOL
     Dates: start: 20200519
  22. PARACETAMOLUM [Concomitant]
     Active Substance: ACETAMINOPHEN
     Dates: start: 20200519
  23. ALLOPURINOLUM [Concomitant]
     Dates: start: 20200428
  24. ALLOPURINOLUM [Concomitant]
     Dates: start: 20200324
  25. SODIUM CHLORIDE 0.9% [Concomitant]
     Active Substance: SODIUM CHLORIDE
     Dates: start: 20200519
  26. SODIUM CHLORIDE 0.9% [Concomitant]
     Active Substance: SODIUM CHLORIDE
     Dates: start: 20200616
  27. SODIUM CHLORIDE 0.9% [Concomitant]
     Active Substance: SODIUM CHLORIDE
     Dates: start: 20200317
  28. PARACETAMOLUM [Concomitant]
     Active Substance: ACETAMINOPHEN
     Dates: start: 20200428
  29. SOLU?MEDROL [Concomitant]
     Active Substance: METHYLPREDNISOLONE SODIUM SUCCINATE
  30. METHYLPREDNISOLONE. [Concomitant]
     Active Substance: METHYLPREDNISOLONE
     Dates: start: 20200616
  31. SODIUM CHLORIDE 0.9% [Concomitant]
     Active Substance: SODIUM CHLORIDE
     Dates: start: 20200407
  32. SODIUM CHLORIDE 0.9% [Concomitant]
     Active Substance: SODIUM CHLORIDE
     Dates: start: 20200428
  33. SODIUM CHLORIDE 0.9% [Concomitant]
     Active Substance: SODIUM CHLORIDE
     Dates: start: 20200519
  34. SODIUM CHLORIDE 0.9% [Concomitant]
     Active Substance: SODIUM CHLORIDE
     Dates: start: 20200407
  35. RO7082859 (CD20/C3 T?CELL BISPECIFIC MAB) [Suspect]
     Active Substance: GLOFITAMAB
     Indication: B-CELL LYMPHOMA RECURRENT
     Dosage: ON 19/MAY/2020 AT 12:46 AM TO 4:46 PM PATIENT RECEIVED LAST STUDY DOSE OF RO7082859 ADMIN PRIOR AE W
     Route: 042
     Dates: start: 20200324
  36. SODIUM CHLORIDE 0.9% [Concomitant]
     Active Substance: SODIUM CHLORIDE
     Dates: start: 20200324
  37. SODIUM CHLORIDE 0.9% [Concomitant]
     Active Substance: SODIUM CHLORIDE
     Dates: start: 20200324
  38. BISEPTOL [Concomitant]
     Active Substance: SULFAMETHOXAZOLE\TRIMETHOPRIM
     Indication: ANTIBIOTIC PROPHYLAXIS
     Dates: start: 20200517
  39. PARACETAMOLUM [Concomitant]
     Active Substance: ACETAMINOPHEN
     Dates: start: 20200616
  40. SOLU?MEDROL [Concomitant]
     Active Substance: METHYLPREDNISOLONE SODIUM SUCCINATE
     Dates: start: 20200428
  41. CLEMASTINUM [Concomitant]
     Active Substance: CLEMASTINE FUMARATE
     Dates: start: 20200616
  42. ALLOPURINOLUM [Concomitant]
     Dates: start: 20200407
  43. ACICLOVIRUM [Concomitant]
     Indication: ANTIVIRAL PROPHYLAXIS
     Dates: start: 20200317
  44. OMEPRAZOLE. [Concomitant]
     Active Substance: OMEPRAZOLE
     Indication: ABDOMINAL PAIN
     Route: 048
     Dates: start: 20200608
  45. METHYLPREDNISOLONE. [Concomitant]
     Active Substance: METHYLPREDNISOLONE
     Dates: start: 20200616

REACTIONS (2)
  - Febrile neutropenia [Not Recovered/Not Resolved]
  - Neutropenia [Not Recovered/Not Resolved]

NARRATIVE: CASE EVENT DATE: 20200609
